FAERS Safety Report 18304028 (Version 6)
Quarter: 2020Q4

REPORT INFORMATION
  Report Type: Report from Study
  Country: CN (occurrence: CN)
  Receive Date: 20200923
  Receipt Date: 20201221
  Transmission Date: 20210113
  Serious: Yes (Hospitalization)
  Sender: FDA-Public Use
  Company Number: CN-CELGENEUS-CHN-20200903801

PATIENT
  Age: 73 Year
  Sex: Female
  Weight: 70 kg

DRUGS (6)
  1. AG-221 [Suspect]
     Active Substance: ENASIDENIB
     Dosage: 150 MILLIGRAM
     Route: 048
     Dates: end: 20200913
  2. AG-221 [Suspect]
     Active Substance: ENASIDENIB
     Indication: ACUTE MYELOID LEUKAEMIA
     Dosage: 150 MILLIGRAM
     Route: 048
     Dates: start: 20180604
  3. AG-221 [Suspect]
     Active Substance: ENASIDENIB
     Dosage: 200 MILLIGRAM
     Route: 048
     Dates: start: 20180803
  4. AG-221 [Suspect]
     Active Substance: ENASIDENIB
     Dosage: 150 MILLIGRAM
     Route: 048
     Dates: start: 20180913
  5. AG-221 [Suspect]
     Active Substance: ENASIDENIB
     Dosage: 100 MILLIGRAM
     Route: 048
  6. AG-221 [Suspect]
     Active Substance: ENASIDENIB
     Dosage: 100 MILLIGRAM
     Route: 048
     Dates: start: 20200927

REACTIONS (2)
  - Gastrointestinal disorder [Not Recovered/Not Resolved]
  - Headache [Recovered/Resolved]

NARRATIVE: CASE EVENT DATE: 20200910
